FAERS Safety Report 23168616 (Version 1)
Quarter: 2023Q4

REPORT INFORMATION
  Report Type: Spontaneous
  Country: NZ (occurrence: NZ)
  Receive Date: 20231110
  Receipt Date: 20231110
  Transmission Date: 20240109
  Serious: Yes (Hospitalization)
  Sender: FDA-Public Use
  Company Number: NZ-BoehringerIngelheim-2023-BI-270021

PATIENT
  Age: 69 Year
  Sex: Male
  Weight: 83 kg

DRUGS (1)
  1. JARDIANCE [Suspect]
     Active Substance: EMPAGLIFLOZIN
     Indication: Type 2 diabetes mellitus
     Route: 048
     Dates: start: 20220714, end: 20220926

REACTIONS (4)
  - Chronic obstructive pulmonary disease [Recovering/Resolving]
  - Cardiorenal syndrome [Recovering/Resolving]
  - Hypervolaemia [Recovering/Resolving]
  - Glomerular filtration rate decreased [Recovering/Resolving]

NARRATIVE: CASE EVENT DATE: 20220926
